FAERS Safety Report 10643384 (Version 1)
Quarter: 2014Q4

REPORT INFORMATION
  Report Type: Spontaneous
  Country: US (occurrence: None)
  Receive Date: 20141121
  Receipt Date: 20141121
  Transmission Date: 20150529
  Serious: No
  Sender: FDA-Public Use
  Company Number: 163-10004-14082889

PATIENT
  Age: 75 Year
  Sex: Female

DRUGS (2)
  1. EFFEXOR (VENLAFAXINE HYDROCHLORIDE) [Concomitant]
  2. OTEZLA [Suspect]
     Active Substance: APREMILAST
     Indication: PSORIATIC ARTHROPATHY
     Route: 048
     Dates: start: 20140805, end: 20140808

REACTIONS (5)
  - Vomiting [None]
  - Depression [None]
  - Abdominal discomfort [None]
  - Insomnia [None]
  - Diarrhoea [None]

NARRATIVE: CASE EVENT DATE: 2014
